FAERS Safety Report 12978298 (Version 1)
Quarter: 2016Q4

REPORT INFORMATION
  Report Type: Spontaneous
  Country: CO (occurrence: CO)
  Receive Date: 20161128
  Receipt Date: 20161128
  Transmission Date: 20170207
  Serious: Yes (Other)
  Sender: FDA-Public Use
  Company Number: CO-009507513-1611COL011603

PATIENT
  Age: 67 Year
  Sex: Male

DRUGS (2)
  1. CYLATRON [Suspect]
     Active Substance: PEGINTERFERON ALFA-2B
     Dosage: UNK
     Route: 058
     Dates: start: 201610, end: 201610
  2. CYLATRON [Suspect]
     Active Substance: PEGINTERFERON ALFA-2B
     Indication: ACRAL LENTIGINOUS MELANOMA STAGE III
     Dosage: UNK
     Route: 058
     Dates: start: 201512, end: 201610

REACTIONS (2)
  - Myositis [Not Recovered/Not Resolved]
  - Panniculitis [Not Recovered/Not Resolved]

NARRATIVE: CASE EVENT DATE: 20160824
